FAERS Safety Report 24553744 (Version 1)
Quarter: 2024Q4

REPORT INFORMATION
  Report Type: Report from Study
  Country: DE (occurrence: DE)
  Receive Date: 20241028
  Receipt Date: 20241028
  Transmission Date: 20250114
  Serious: No
  Sender: ROCHE
  Company Number: DE-IPSEN Group, Research and Development-2023-27026

PATIENT
  Age: 34 Year
  Sex: Female
  Weight: 58.5 kg

DRUGS (10)
  1. NUTROPIN AQ [Suspect]
     Active Substance: SOMATROPIN
     Indication: Growth hormone deficiency
     Route: 058
     Dates: start: 20210826, end: 20230730
  2. NUTROPIN AQ [Suspect]
     Active Substance: SOMATROPIN
     Route: 058
     Dates: start: 20230801, end: 20231030
  3. LEVOTHYROXINE SODIUM [Concomitant]
     Active Substance: LEVOTHYROXINE SODIUM
     Indication: Autoimmune thyroiditis
     Route: 048
     Dates: start: 20110826, end: 202309
  4. LEVOTHYROXINE SODIUM [Concomitant]
     Active Substance: LEVOTHYROXINE SODIUM
     Route: 048
     Dates: start: 202309
  5. PRASTERONE [Concomitant]
     Active Substance: PRASTERONE
     Route: 048
     Dates: start: 20220209, end: 202307
  6. PROGESTERONE [Concomitant]
     Active Substance: PROGESTERONE
     Indication: Amenorrhoea
     Route: 048
     Dates: start: 202308, end: 20231115
  7. ASS PROTECT [Concomitant]
     Indication: Prophylaxis
     Route: 048
     Dates: start: 202308
  8. SPIRAMYCIN [Concomitant]
     Active Substance: SPIRAMYCIN
     Indication: Toxoplasmosis
     Dosage: 6 TABLETS/D
     Route: 048
     Dates: start: 202308
  9. ERGOCALCIFEROL [Concomitant]
     Active Substance: ERGOCALCIFEROL
     Indication: Vitamin D deficiency
     Route: 048
     Dates: start: 20150211
  10. ETHINYL ESTRADIOL\LEVONORGESTREL [Concomitant]
     Active Substance: ETHINYL ESTRADIOL\LEVONORGESTREL
     Indication: Amenorrhoea
     Route: 048
     Dates: start: 2022, end: 20230730

REACTIONS (2)
  - Maternal exposure during pregnancy [Unknown]
  - Maternal exposure before pregnancy [Unknown]
